FAERS Safety Report 7680083-6 (Version None)
Quarter: 2011Q3

REPORT INFORMATION
  Report Type: 
  Country: None (occurrence: None)
  Receive Date: 20110812
  Receipt Date: 20110801
  Transmission Date: 20111222
  Serious: Yes (Other)
  Sender: FDA-Public Use
  Company Number: FI-ROCHE-793762

PATIENT

DRUGS (4)
  1. KETAMINE HCL [Interacting]
     Dosage: DRUG: S-KETAMINE, IN SYRUP WITH 20 ML OF WATER
     Route: 048
  2. ITRACONAZOLE [Interacting]
     Route: 048
  3. PLACEBO [Suspect]
     Route: 065
  4. TICLOPIDINE HCL [Suspect]
     Route: 048

REACTIONS (3)
  - DRUG INTERACTION [None]
  - SOMNOLENCE [None]
  - PERFORMANCE STATUS DECREASED [None]
